FAERS Safety Report 22712281 (Version 2)
Quarter: 2023Q4

REPORT INFORMATION
  Report Type: Spontaneous
  Country: CA (occurrence: None)
  Receive Date: 20230717
  Receipt Date: 20231125
  Transmission Date: 20240110
  Serious: Yes (Other)
  Sender: FDA-Public Use
  Company Number: CA-ROCHE-3389129

PATIENT
  Age: 63 Year
  Sex: Female

DRUGS (7)
  1. BEVACIZUMAB [Suspect]
     Active Substance: BEVACIZUMAB
     Indication: Glioblastoma
     Route: 040
  2. BEVACIZUMAB [Suspect]
     Active Substance: BEVACIZUMAB
     Route: 040
  3. BEVACIZUMAB [Suspect]
     Active Substance: BEVACIZUMAB
     Route: 040
  4. BEVACIZUMAB [Suspect]
     Active Substance: BEVACIZUMAB
     Route: 040
  5. BEVACIZUMAB [Suspect]
     Active Substance: BEVACIZUMAB
     Route: 042
  6. BEVACIZUMAB [Suspect]
     Active Substance: BEVACIZUMAB
     Route: 042
  7. KEPPRA [Concomitant]
     Active Substance: LEVETIRACETAM

REACTIONS (6)
  - Fatigue [Recovered/Resolved]
  - Mucosal inflammation [Recovered/Resolved]
  - Off label use [Unknown]
  - Rectal haemorrhage [Recovered/Resolved]
  - Syncope [Recovered/Resolved]
  - COVID-19 [Recovered/Resolved]
